FAERS Safety Report 9753177 (Version 1)
Quarter: 2013Q4

REPORT INFORMATION
  Report Type: Spontaneous
  Country: US (occurrence: US)
  Receive Date: 20131213
  Receipt Date: 20131213
  Transmission Date: 20140711
  Serious: No
  Sender: FDA-Public Use
  Company Number: US-GILEAD-2010-0026904

PATIENT
  Age: 89 Year
  Sex: Female
  Weight: 53.52 kg

DRUGS (5)
  1. LETAIRIS [Suspect]
     Indication: PULMONARY ARTERIAL HYPERTENSION
     Route: 048
  2. COUMADIN [Concomitant]
  3. LASIX [Concomitant]
  4. PROTONIX [Concomitant]
  5. KLOR-CON [Concomitant]

REACTIONS (1)
  - Oedema peripheral [Recovering/Resolving]
